FAERS Safety Report 9036791 (Version 1)
Quarter: 2013Q1

REPORT INFORMATION
  Report Type: Spontaneous
  Country: DK (occurrence: None)
  Receive Date: 20130114
  Receipt Date: 20130114
  Transmission Date: 20140127
  Serious: Yes (Death, Hospitalization, Other)
  Sender: FDA-Public Use
  Company Number: 2013MA000160

PATIENT
  Age: 10 Month
  Sex: Female

DRUGS (7)
  1. DIAZEPAM TABLETS USP, 10 MG (PUREPAC) (DIAZEPAM) [Suspect]
     Indication: CONVULSION
     Route: 054
     Dates: start: 20121127, end: 20121127
  2. PHENYTOIN [Suspect]
     Indication: CONVULSION
     Dosage: IV NOS
     Route: 042
  3. BUCCOLAM [Suspect]
     Indication: CONVULSION
     Route: 050
     Dates: start: 2012
  4. ERYTHROMYCIN (ERYTHROMYCIN) [Suspect]
     Indication: NASOPHARYNGITIS
     Dosage: 1 DF
     Dates: start: 20121126
  5. VALPROIC ACID [Suspect]
     Indication: EPILEPSY
     Dates: start: 2012
  6. LEVETIRACETAM [Concomitant]
  7. ANTIBIOTICS [Concomitant]

REACTIONS (7)
  - Respiratory acidosis [None]
  - Cardiac arrest neonatal [None]
  - Hypoventilation [None]
  - Tachycardia [None]
  - Drug interaction [None]
  - Drug ineffective [None]
  - Convulsion [None]
